FAERS Safety Report 9249502 (Version 2)
Quarter: 2013Q2

REPORT INFORMATION
  Report Type: Report from Study
  Country: US (occurrence: US)
  Receive Date: 20130423
  Receipt Date: 20130620
  Transmission Date: 20140414
  Serious: Yes (Other)
  Sender: FDA-Public Use
  Company Number: PHEH2013US008910

PATIENT
  Age: 77 Year
  Sex: Female
  Weight: 70.76 kg

DRUGS (2)
  1. GLEEVEC [Suspect]
     Indication: GASTRIC CANCER
     Dosage: 400 MG, PER DAY
     Route: 048
     Dates: start: 20130227
  2. GLEEVEC [Suspect]
     Indication: GASTROINTESTINAL STROMAL TUMOUR
     Dosage: 400 MG, UNK
     Route: 048
     Dates: start: 20130225

REACTIONS (2)
  - Ankle fracture [Unknown]
  - Periorbital oedema [Recovered/Resolved]
